FAERS Safety Report 21512329 (Version 2)
Quarter: 2022Q4

REPORT INFORMATION
  Report Type: Report from Study
  Country: CA (occurrence: CA)
  Receive Date: 20221027
  Receipt Date: 20221227
  Transmission Date: 20230113
  Serious: Yes (Hospitalization)
  Sender: FDA-Public Use
  Company Number: CA-NOVARTISPH-NVSC2021CA267347

PATIENT
  Sex: Female

DRUGS (2)
  1. KESIMPTA [Suspect]
     Active Substance: OFATUMUMAB
     Indication: Relapsing-remitting multiple sclerosis
     Dosage: UNK
     Route: 058
     Dates: start: 20211022
  2. AMOXICILLIN [Concomitant]
     Active Substance: AMOXICILLIN
     Indication: Product used for unknown indication
     Dosage: UNK (10 DAYS AS PRECAUTION)
     Route: 065

REACTIONS (8)
  - Appendicitis [Unknown]
  - Renal pain [Unknown]
  - Uterine pain [Unknown]
  - Gastrointestinal pain [Unknown]
  - Uterine leiomyoma [Unknown]
  - Abdominal pain upper [Unknown]
  - Intermenstrual bleeding [Unknown]
  - Weight decreased [Unknown]

NARRATIVE: CASE EVENT DATE: 20211101
